FAERS Safety Report 10874418 (Version 1)
Quarter: 2015Q1

REPORT INFORMATION
  Report Type: Report from Study
  Country: US (occurrence: None)
  Receive Date: 20150224
  Receipt Date: 20150224
  Transmission Date: 20150721
  Serious: Yes (Other)
  Sender: FDA-Public Use
  Company Number: US-001731

PATIENT
  Age: 65 Year
  Sex: Female

DRUGS (2)
  1. GATTEX [Suspect]
     Active Substance: TEDUGLUTIDE\WATER
     Indication: SHORT-BOWEL SYNDROME
     Dosage: DF SUBCUTANEOUS?
     Route: 058
     Dates: start: 20140708
  2. SOLUTIONIS FOR PARENTERAL NUTRITION [Concomitant]

REACTIONS (2)
  - Neck surgery [None]
  - Neuralgia [None]

NARRATIVE: CASE EVENT DATE: 201412
